FAERS Safety Report 23978916 (Version 9)
Quarter: 2025Q3

REPORT INFORMATION
  Report Type: Spontaneous
  Country: EU (occurrence: EU)
  Receive Date: 20240615
  Receipt Date: 20250714
  Transmission Date: 20251020
  Serious: Yes (Hospitalization, Other)
  Sender: AUROBINDO
  Company Number: EU-SYNTHON BV-IN51PV24_74891

PATIENT
  Age: 42 Year
  Sex: Male
  Weight: 65.9 kg

DRUGS (24)
  1. CLOZAPINE [Interacting]
     Active Substance: CLOZAPINE
     Indication: Schizoaffective disorder
     Dosage: 450 MILLIGRAM, ONCE A DAY
     Route: 065
  2. CLOZAPINE [Interacting]
     Active Substance: CLOZAPINE
     Dosage: 500 MILLIGRAM, ONCE A DAY
     Route: 065
  3. CLOZAPINE [Interacting]
     Active Substance: CLOZAPINE
     Route: 065
     Dates: start: 2005, end: 2018
  4. CLOZAPINE [Interacting]
     Active Substance: CLOZAPINE
     Route: 065
     Dates: start: 201901
  5. CLOZAPINE [Interacting]
     Active Substance: CLOZAPINE
     Dosage: 600 MILLIGRAM, ONCE A DAY
     Route: 065
     Dates: start: 2021
  6. CLOZAPINE [Interacting]
     Active Substance: CLOZAPINE
     Dosage: 550 MILLIGRAM, ONCE A DAY
     Route: 065
     Dates: start: 2021, end: 2021
  7. CLOZAPINE [Interacting]
     Active Substance: CLOZAPINE
     Dosage: 500 MILLIGRAM, ONCE A DAY
     Route: 065
     Dates: start: 2021
  8. MEMANTINE [Suspect]
     Active Substance: MEMANTINE
     Indication: Schizoaffective disorder
     Route: 065
     Dates: start: 2021, end: 2021
  9. VALPROATE SODIUM [Suspect]
     Active Substance: VALPROATE SODIUM
     Indication: Schizoaffective disorder
     Dosage: 2 GRAM, ONCE A DAY
     Route: 065
     Dates: start: 202109, end: 2021
  10. CARBAMAZEPINE [Interacting]
     Active Substance: CARBAMAZEPINE
     Indication: Schizoaffective disorder
     Dosage: 200 MILLIGRAM, TWO TIMES A DAY (400 MILLIGRAM ONCE A DAY)
     Route: 065
     Dates: start: 2021, end: 2021
  11. CARBAMAZEPINE [Interacting]
     Active Substance: CARBAMAZEPINE
     Dosage: 600 MILLIGRAM, ONCE A DAY
     Route: 065
     Dates: start: 202212
  12. CARBAMAZEPINE [Interacting]
     Active Substance: CARBAMAZEPINE
     Dosage: 400 MILLIGRAM, ONCE A DAY
     Route: 065
     Dates: start: 2021, end: 2021
  13. FLUVOXAMINE [Interacting]
     Active Substance: FLUVOXAMINE
     Indication: Schizoaffective disorder
     Route: 065
     Dates: start: 2021
  14. FLUVOXAMINE [Interacting]
     Active Substance: FLUVOXAMINE
     Route: 065
     Dates: start: 2021
  15. FLUVOXAMINE [Interacting]
     Active Substance: FLUVOXAMINE
     Route: 065
     Dates: start: 202212
  16. HALOPERIDOL [Suspect]
     Active Substance: HALOPERIDOL
     Indication: Schizoaffective disorder
     Route: 048
     Dates: start: 2020, end: 2020
  17. HALOPERIDOL [Suspect]
     Active Substance: HALOPERIDOL
     Route: 042
     Dates: start: 2020
  18. LITHIUM CARBONATE [Suspect]
     Active Substance: LITHIUM CARBONATE
     Indication: Schizoaffective disorder
     Route: 065
     Dates: end: 202105
  19. ZUCLOPENTHIXOL [Suspect]
     Active Substance: ZUCLOPENTHIXOL
     Indication: Schizoaffective disorder
     Route: 065
  20. DROPERIDOL [Concomitant]
     Active Substance: DROPERIDOL
     Indication: Schizoaffective disorder
     Route: 065
     Dates: start: 2021
  21. GLYCOPYRRONIUM [Concomitant]
     Active Substance: GLYCOPYRRONIUM
     Indication: Product used for unknown indication
     Route: 065
     Dates: start: 2021, end: 2021
  22. LACTULOSE [Concomitant]
     Active Substance: LACTULOSE
     Indication: Constipation prophylaxis
     Route: 065
     Dates: start: 2021
  23. LORAZEPAM [Concomitant]
     Active Substance: LORAZEPAM
     Indication: Schizoaffective disorder
     Route: 065
     Dates: start: 2021, end: 2021
  24. LORAZEPAM [Concomitant]
     Active Substance: LORAZEPAM
     Indication: Constipation prophylaxis

REACTIONS (15)
  - Drug metabolite level high [Unknown]
  - Ileus [Unknown]
  - Constipation [Unknown]
  - Vomiting [Recovering/Resolving]
  - Faecal vomiting [Recovering/Resolving]
  - Ileus paralytic [Recovering/Resolving]
  - Nausea [Recovering/Resolving]
  - Antipsychotic drug level above therapeutic [Recovered/Resolved]
  - Salivary hypersecretion [Recovered/Resolved]
  - Drug interaction [Recovered/Resolved]
  - Drug ineffective [Unknown]
  - No adverse event [Unknown]
  - Drug level decreased [Unknown]
  - Rebound effect [Unknown]
  - Antipsychotic drug level decreased [Unknown]

NARRATIVE: CASE EVENT DATE: 20180101
